FAERS Safety Report 14243965 (Version 1)
Quarter: 2017Q4

REPORT INFORMATION
  Report Type: Spontaneous
  Country: US (occurrence: US)
  Receive Date: 20171201
  Receipt Date: 20171201
  Transmission Date: 20180321
  Serious: Yes (Other)
  Sender: FDA-Public Use
  Company Number: US-SAOL THERAPEUTICS-2017SAO03409

PATIENT
  Sex: Female

DRUGS (4)
  1. PAIN PILLS - UNSPECIFIED [Concomitant]
  2. BACLOFEN. [Suspect]
     Active Substance: BACLOFEN
     Indication: PAIN
     Route: 037
  3. BACLOFEN. [Suspect]
     Active Substance: BACLOFEN
     Indication: POST LAMINECTOMY SYNDROME
  4. MARIJUANA [Concomitant]
     Active Substance: CANNABIS SATIVA SUBSP. INDICA TOP

REACTIONS (4)
  - Performance status decreased [Unknown]
  - Off label use [Unknown]
  - Burning sensation [Unknown]
  - Drug dose omission [Not Recovered/Not Resolved]
